FAERS Safety Report 7549607-3 (Version None)
Quarter: 2011Q2

REPORT INFORMATION
  Report Type: 
  Country: None (occurrence: None)
  Receive Date: 20110615
  Receipt Date: 20110607
  Transmission Date: 20111010
  Serious: Yes (Hospitalization)
  Sender: FDA-Public Use
  Company Number: B0724385A

PATIENT
  Sex: Male

DRUGS (3)
  1. PREDNISONE [Concomitant]
     Dates: start: 20101229, end: 20110101
  2. ALKERAN [Suspect]
     Indication: MULTIPLE MYELOMA
     Dosage: 16MG PER DAY
     Route: 048
     Dates: start: 20101229, end: 20110101
  3. VELCADE [Suspect]
     Indication: MULTIPLE MYELOMA
     Dosage: 3.5MG PER DAY
     Route: 042
     Dates: start: 20101229, end: 20110105

REACTIONS (1)
  - FEBRILE NEUTROPENIA [None]
